FAERS Safety Report 10265951 (Version 1)
Quarter: 2014Q2

REPORT INFORMATION
  Report Type: Spontaneous
  Country: US (occurrence: US)
  Receive Date: 20140627
  Receipt Date: 20140627
  Transmission Date: 20141212
  Serious: Yes (Death, Other)
  Sender: FDA-Public Use
  Company Number: US-CUBIST PHARMACEUTICAL, INC.-2014CBST000909

PATIENT
  Sex: 0

DRUGS (11)
  1. CUBICIN [Suspect]
     Indication: GRAFT INFECTION
     Dosage: UNK UNK, UNK
     Route: 065
  2. CUBICIN [Suspect]
     Indication: ENTEROCOCCAL INFECTION
  3. CUBICIN [Suspect]
     Indication: CANDIDA INFECTION
  4. CUBICIN [Suspect]
     Indication: OFF LABEL USE
  5. VANCOMYCIN [Concomitant]
     Indication: ANTIBIOTIC THERAPY
     Dosage: UNK UNK, UNK
     Route: 065
  6. PIPERACILLIN/TAZOBACTAM [Concomitant]
     Indication: ANTIBIOTIC THERAPY
     Dosage: UNK UNK, UNK
     Route: 065
  7. AZITHROMYCIN [Concomitant]
     Indication: ANTIBIOTIC THERAPY
     Dosage: UNK UNK, UNK
     Route: 065
  8. CIPROFLOXACIN [Concomitant]
     Indication: SALMONELLA BACTERAEMIA
     Dosage: UNK UNK, UNK
     Route: 065
  9. POLYMYXIN B [Concomitant]
     Indication: PNEUMONIA KLEBSIELLA
     Dosage: UNK UNK, UNK
     Route: 065
  10. TIGECYCLINE [Concomitant]
     Indication: PNEUMONIA KLEBSIELLA
     Dosage: UNK UNK, UNK
     Route: 065
  11. MICAFUNGIN [Concomitant]
     Indication: FUNGAL INFECTION
     Dosage: UNK UNK, UNK
     Route: 065

REACTIONS (2)
  - Death [Fatal]
  - Graft complication [Unknown]
